FAERS Safety Report 5801283 (Version 18)
Quarter: 2013Q2

REPORT INFORMATION
  Report Type: Spontaneous
  Country: US (occurrence: US)
  Receive Date: 20050523
  Receipt Date: 20130416
  Transmission Date: 20140414
  Serious: Yes (Death, Hospitalization, Other)
  Sender: FDA-Public Use
  Company Number: PHEH2005US01512

PATIENT
  Age: 76 Year
  Sex: Female

DRUGS (7)
  1. AREDIA [Suspect]
     Indication: BONE LOSS
     Dates: end: 20030909
  2. ZOMETA [Suspect]
  3. CLINDAMYCIN [Concomitant]
     Dosage: 150 MG, UNK
     Dates: start: 200509
  4. TAMOXIFEN [Concomitant]
  5. PROCRIT [Concomitant]
  6. METOPROLOL [Concomitant]
     Dosage: 12.5 MG, BID
     Route: 048
  7. FERROUS SULFATE [Concomitant]
     Dosage: 45 MG, QD
     Route: 048

REACTIONS (54)
  - Ankle fracture [Unknown]
  - Hand fracture [Unknown]
  - Intervertebral disc degeneration [Unknown]
  - Intervertebral disc compression [Unknown]
  - Lacunar infarction [Unknown]
  - Anaemia [Unknown]
  - Syncope [Unknown]
  - Faecal incontinence [Unknown]
  - Arrhythmia [Unknown]
  - Gait disturbance [Unknown]
  - Urinary incontinence [Unknown]
  - Skin ulcer [Unknown]
  - Mitral valve prolapse [Unknown]
  - Disorientation [Unknown]
  - Arteriosclerosis coronary artery [Unknown]
  - Aortic calcification [Unknown]
  - Osteitis [Unknown]
  - Plasma cell myeloma [Unknown]
  - Bone cancer [Unknown]
  - Wound [Unknown]
  - Confusional state [Unknown]
  - Bone lesion [Unknown]
  - Blood triglycerides increased [Unknown]
  - Low density lipoprotein increased [Unknown]
  - Blood creatinine increased [Unknown]
  - Blood urea increased [Unknown]
  - Blood glucose increased [Unknown]
  - Red blood cell count decreased [Unknown]
  - Haemoglobin decreased [Unknown]
  - Haematocrit decreased [Unknown]
  - Lymphocyte count decreased [Unknown]
  - Asthenia [Unknown]
  - Musculoskeletal pain [Unknown]
  - Swelling [Unknown]
  - Joint dislocation [Unknown]
  - Osteomyelitis chronic [Unknown]
  - Death [Fatal]
  - Fall [Unknown]
  - Limb injury [Unknown]
  - Osteonecrosis of jaw [Not Recovered/Not Resolved]
  - Inflammation [Unknown]
  - Swelling face [Unknown]
  - Pain in jaw [Recovering/Resolving]
  - Bone disorder [Unknown]
  - Dental fistula [Unknown]
  - Injury [Unknown]
  - Pain [Unknown]
  - Anxiety [Unknown]
  - General physical condition abnormal [Unknown]
  - Rib fracture [Unknown]
  - Arteriosclerosis [Unknown]
  - Smear cervix abnormal [Unknown]
  - Dementia Alzheimer^s type [Unknown]
  - Hypertension [Unknown]
